FAERS Safety Report 6878783-0 (Version None)
Quarter: 2010Q3

REPORT INFORMATION
  Report Type: 
  Country: None (occurrence: None)
  Receive Date: 20100728
  Receipt Date: 20100708
  Transmission Date: 20110219
  Serious: Yes (Hospitalization, Other)
  Sender: FDA-Public Use
  Company Number: US-BAYER-200935586NA

PATIENT
  Age: 34 Year
  Sex: Female
  Weight: 77 kg

DRUGS (16)
  1. YAZ [Suspect]
     Indication: ORAL CONTRACEPTION
     Route: 048
     Dates: start: 20040701, end: 20081001
  2. YASMIN [Suspect]
     Indication: ORAL CONTRACEPTION
     Route: 048
     Dates: start: 20040701, end: 20081001
  3. ALEVE (CAPLET) [Concomitant]
     Dosage: UNIT DOSE: 1000 MG
     Dates: start: 20050101, end: 20080101
  4. CIPRO [Concomitant]
     Dates: start: 20081001, end: 20090701
  5. ROCEPHIN [Concomitant]
     Dates: start: 20081001, end: 20090701
  6. LEVAQUIN [Concomitant]
     Dates: start: 20081001, end: 20090701
  7. LABETALOL HCL [Concomitant]
     Dates: start: 20081001, end: 20081201
  8. EXCEDRIN (MIGRAINE) [Concomitant]
  9. FERROUS SULFATE [Concomitant]
     Dosage: TOTAL DAILY DOSE: 325 MG  UNIT DOSE: 325 MG
  10. PROTONIX [Concomitant]
     Dosage: TOTAL DAILY DOSE: 40 MG  UNIT DOSE: 40 MG
  11. CALCIUM ACETATE [Concomitant]
  12. RENAGEL [Concomitant]
     Dosage: UNIT DOSE: 800 MG
  13. PROGRAF [Concomitant]
     Dosage: TOTAL DAILY DOSE: 15 MG  UNIT DOSE: 5 MG
     Route: 048
  14. CELLCEPT [Concomitant]
  15. VALCYTE [Concomitant]
     Dosage: TOTAL DAILY DOSE: 900 MG  UNIT DOSE: 900 MG
     Route: 048
  16. PREDNISONE [Concomitant]
     Dosage: TOTAL DAILY DOSE: 30 MG  UNIT DOSE: 30 MG
     Route: 048

REACTIONS (13)
  - AZOTAEMIA [None]
  - ECCHYMOSIS [None]
  - GLOMERULAR FILTRATION RATE DECREASED [None]
  - HEADACHE [None]
  - HYPERTENSION [None]
  - NAUSEA [None]
  - NORMOCHROMIC NORMOCYTIC ANAEMIA [None]
  - PAIN [None]
  - PALPITATIONS [None]
  - RENAL FAILURE CHRONIC [None]
  - SUPRAVENTRICULAR EXTRASYSTOLES [None]
  - SYNCOPE [None]
  - THROMBOSIS [None]
